FAERS Safety Report 5019840-3 (Version None)
Quarter: 2006Q2

REPORT INFORMATION
  Report Type: 
  Country: None (occurrence: None)
  Receive Date: 20060601
  Receipt Date: 20060519
  Transmission Date: 20061013
  Serious: Yes (Other)
  Sender: FDA-Public Use
  Company Number: 2006066986

PATIENT
  Age: 68 Year
  Sex: Female

DRUGS (5)
  1. LYRICA [Suspect]
     Indication: NEURALGIA
     Dosage: 150 MG (75 MG, 2 IN 1 D) ORAL
     Route: 048
     Dates: start: 20060512, end: 20060513
  2. TIKLID (TICLODIPINE HYDROCHLORIDE) [Concomitant]
  3. LIMPIDEX (LANSOPRAZOLE) [Concomitant]
  4. SOTALOL HCL [Concomitant]
  5. ENOXAPARIN SODIUM [Concomitant]

REACTIONS (2)
  - LOCALISED OEDEMA [None]
  - LYMPHADENOPATHY [None]
